FAERS Safety Report 4388662-9 (Version None)
Quarter: 2004Q2

REPORT INFORMATION
  Report Type: 
  Country: None (occurrence: None)
  Receive Date: 20040624
  Receipt Date: 20040616
  Transmission Date: 20050107
  Serious: Yes (Hospitalization)
  Sender: FDA-Public Use
  Company Number: 2004-BP-04721EX

PATIENT
  Sex: Female
  Weight: 66.5 kg

DRUGS (3)
  1. DEXAMETHASONE [Suspect]
     Dosage: 2 MG TID (2 MG), PO
     Route: 048
  2. GLEEVEC [Suspect]
     Indication: BRAIN NEOPLASM MALIGNANT
     Dosage: 300 MG BID (300 MG), PO
     Route: 048
     Dates: start: 20031222, end: 20040211
  3. GLEEVEC [Suspect]
     Indication: BRAIN NEOPLASM MALIGNANT
     Dosage: 300 MG BID (300 MG), PO
     Route: 048
     Dates: start: 20040213

REACTIONS (2)
  - GAIT DISTURBANCE [None]
  - MYOPATHY STEROID [None]
